FAERS Safety Report 6075698-5 (Version None)
Quarter: 2009Q1

REPORT INFORMATION
  Report Type: 
  Country: None (occurrence: None)
  Receive Date: 20090212
  Receipt Date: 20090206
  Transmission Date: 20090719
  Serious: Yes (Hospitalization)
  Sender: FDA-Public Use
  Company Number: US-MERCK-0902USA01708

PATIENT
  Age: 72 Year
  Sex: Male

DRUGS (2)
  1. PRINIVIL [Suspect]
     Route: 048
     Dates: end: 20040201
  2. TERAZOSIN HYDROCHLORIDE [Suspect]
     Route: 048

REACTIONS (6)
  - ASTHENIA [None]
  - DEHYDRATION [None]
  - HYPOTENSION [None]
  - INGUINAL HERNIA [None]
  - INTESTINAL OBSTRUCTION [None]
  - SYNCOPE [None]
